FAERS Safety Report 4430739-3 (Version None)
Quarter: 2004Q3

REPORT INFORMATION
  Report Type: 
  Country: None (occurrence: None)
  Receive Date: 20040818
  Receipt Date: 20040805
  Transmission Date: 20050211
  Serious: Yes (Other)
  Sender: FDA-Public Use
  Company Number: JP-2004-029313

PATIENT
  Age: 65 Year
  Sex: Female

DRUGS (1)
  1. PROSCOPE 370 (IOPROMIDE) INFUSION [Suspect]
     Indication: ARTERIOGRAM CORONARY
     Dosage: 200 ML 1 DOSE, INTRACORONARY
     Route: 022
     Dates: start: 20040720, end: 20040720

REACTIONS (2)
  - BLOOD PRESSURE SYSTOLIC DECREASED [None]
  - SHOCK [None]
